FAERS Safety Report 7945687-1 (Version None)
Quarter: 2011Q4

REPORT INFORMATION
  Report Type: 
  Country: None (occurrence: None)
  Receive Date: 20111129
  Receipt Date: 20111124
  Transmission Date: 20120403
  Serious: Yes (Other)
  Sender: FDA-Public Use
  Company Number: CA-PFIZER INC-2011236699

PATIENT
  Age: 57 Year
  Sex: Male

DRUGS (3)
  1. SALBUTAMOL [Concomitant]
     Indication: ASTHMA
     Dosage: 4 X/DAY AS NEEDED
     Route: 055
     Dates: start: 20110801
  2. VARENICLINE TARTRATE [Suspect]
     Dosage: 1 MG, 2X/DAY
     Route: 048
     Dates: start: 20110901, end: 20111002
  3. VARENICLINE TARTRATE [Suspect]
     Indication: SMOKING CESSATION THERAPY
     Dosage: 0.5 MG, 1X/DAY
     Route: 048
     Dates: start: 20110901, end: 20110901

REACTIONS (3)
  - PENILE EXFOLIATION [None]
  - BALANITIS [None]
  - PENILE SWELLING [None]
